FAERS Safety Report 9587723 (Version 1)
Quarter: 2013Q4

REPORT INFORMATION
  Report Type: Spontaneous
  Country: FR (occurrence: FR)
  Receive Date: 20131003
  Receipt Date: 20131003
  Transmission Date: 20140711
  Serious: Yes (Hospitalization, Other)
  Sender: FDA-Public Use
  Company Number: FR-ELI_LILLY_AND_COMPANY-FR201309007929

PATIENT
  Age: 72 Year
  Sex: Female

DRUGS (7)
  1. ALIMTA [Suspect]
     Dosage: 800 MG, CYCLICAL
     Route: 042
     Dates: start: 20130318
  2. NEUPOGEN [Concomitant]
  3. BISOPROLOL [Concomitant]
     Dosage: 2.5 MG, QD
  4. LASILIX                            /00032601/ [Concomitant]
     Dosage: 20 MG, QD
  5. DEROXAT [Concomitant]
  6. EUPANTOL [Concomitant]
     Dosage: 40 MG, QD
  7. SPECIAFOLDINE [Concomitant]

REACTIONS (9)
  - Pancytopenia [Recovered/Resolved]
  - Vomiting projectile [Recovered/Resolved]
  - Gastritis erosive [Recovered/Resolved]
  - Colitis [Recovered/Resolved]
  - Gastrointestinal candidiasis [Unknown]
  - Pyrexia [Recovered/Resolved]
  - Areflexia [Unknown]
  - Erythema [Unknown]
  - Skin exfoliation [Unknown]
